FAERS Safety Report 12464716 (Version 2)
Quarter: 2016Q3

REPORT INFORMATION
  Report Type: Report from Study
  Country: US (occurrence: US)
  Receive Date: 20160614
  Receipt Date: 20160815
  Transmission Date: 20161109
  Serious: Yes (Death, Hospitalization, Disabling, Congenital Anomaly, Other)
  Sender: FDA-Public Use
  Company Number: US-TEVA-666161USA

PATIENT
  Age: 0 Year
  Sex: Female

DRUGS (1)
  1. COPAXONE [Suspect]
     Active Substance: GLATIRAMER ACETATE
     Dosage: UNKNOWN FORM STRENGTH
     Route: 064

REACTIONS (5)
  - Foetal exposure during pregnancy [Unknown]
  - Hydrocephalus [Fatal]
  - Cleft palate [Fatal]
  - Congenital central nervous system anomaly [Fatal]
  - Cleft lip [Fatal]

NARRATIVE: CASE EVENT DATE: 2006
